FAERS Safety Report 7368805-5 (Version None)
Quarter: 2011Q1

REPORT INFORMATION
  Report Type: 
  Country: None (occurrence: None)
  Receive Date: 20110307
  Receipt Date: 20110225
  Transmission Date: 20110831
  Serious: Yes (Hospitalization)
  Sender: FDA-Public Use
  Company Number: 2011SP002256

PATIENT
  Age: 39 Year
  Sex: Male
  Weight: 136.0791 kg

DRUGS (6)
  1. SEROQUEL [Concomitant]
  2. SAPHRIS [Suspect]
     Indication: BIPOLAR DISORDER
     Dosage: (10 MG; BID; SL) (20 MG; HS; PO)
     Dates: start: 20101001, end: 20110105
  3. SAPHRIS [Suspect]
     Indication: BIPOLAR DISORDER
     Dosage: (10 MG; BID; SL) (20 MG; HS; PO)
     Dates: start: 20100901, end: 20101001
  4. PAROXETINE HCL [Concomitant]
  5. LORAZEPAM [Concomitant]
  6. ALPRAZOLAM [Concomitant]

REACTIONS (3)
  - DUODENAL ULCER HAEMORRHAGE [None]
  - OESOPHAGEAL RUPTURE [None]
  - OESOPHAGEAL ULCER HAEMORRHAGE [None]
